FAERS Safety Report 14797698 (Version 5)
Quarter: 2018Q2

REPORT INFORMATION
  Report Type: Report from Study
  Country: None (occurrence: GB)
  Receive Date: 20180424
  Receipt Date: 20180602
  Transmission Date: 20180711
  Serious: Yes (Other)
  Sender: FDA-Public Use
  Company Number: GB-ABBVIE-18K-167-2330845-00

PATIENT
  Age: 62 Year
  Sex: Male

DRUGS (3)
  1. HUMIRA [Suspect]
     Active Substance: ADALIMUMAB
     Indication: RHEUMATOID ARTHRITIS
     Route: 058
     Dates: start: 20170301
  2. METHOTREXATE. [Suspect]
     Active Substance: METHOTREXATE
     Indication: PRODUCT USED FOR UNKNOWN INDICATION
     Dosage: UNKNOWN (FROM 2005 OR 2006)
     Route: 065
  3. ARTHROTEC [Suspect]
     Active Substance: DICLOFENAC SODIUM\MISOPROSTOL
     Indication: PRODUCT USED FOR UNKNOWN INDICATION
     Dosage: AS NEEDED
     Route: 048

REACTIONS (12)
  - Lower respiratory tract infection [Unknown]
  - Infection [Unknown]
  - Rheumatoid arthritis [Unknown]
  - Seasonal allergy [Not Recovered/Not Resolved]
  - Mobility decreased [Unknown]
  - Rhinitis [Unknown]
  - Pneumonia [Unknown]
  - Nasopharyngitis [Unknown]
  - Fall [Unknown]
  - Tooth disorder [Unknown]
  - Sensitivity to weather change [Unknown]
  - Stress [Not Recovered/Not Resolved]

NARRATIVE: CASE EVENT DATE: 201705
